FAERS Safety Report 8543428-0 (Version None)
Quarter: 2012Q3

REPORT INFORMATION
  Report Type: 
  Country: None (occurrence: None)
  Receive Date: 20120727
  Receipt Date: 20120723
  Transmission Date: 20120928
  Serious: Yes (Other)
  Sender: FDA-Public Use
  Company Number: PHHY2012NZ052557

PATIENT
  Sex: Female

DRUGS (9)
  1. IMATINIB MESYLATE [Suspect]
     Indication: CHRONIC MYELOID LEUKAEMIA
     Dosage: 400 MG, DAILY
     Route: 048
     Dates: start: 20120503, end: 20120607
  2. HYDROXYUREA [Concomitant]
     Dosage: 500 MG, DAILY
  3. COLECALCIFEROL [Concomitant]
     Dosage: 1.25 MG, UNK
     Route: 048
  4. PREDNISONE [Concomitant]
     Dosage: 5 MG, UNK
     Dates: start: 20120531
  5. CILAZAPRIL [Concomitant]
     Indication: HYPERTENSION
     Dosage: 2.5 MG DAILY
     Route: 048
  6. CODEINE SULFATE [Concomitant]
     Indication: PAIN
     Dosage: 30 MG, PRN
     Route: 048
  7. HYDROXYUREA [Concomitant]
     Indication: CHRONIC MYELOID LEUKAEMIA
     Dosage: 1.5 G, UNK
     Route: 048
     Dates: start: 20120423, end: 20120503
  8. CALCIUM CARBONATE [Concomitant]
     Indication: OSTEOPOROSIS
     Dosage: 1.25 MG, UNK
     Route: 048
  9. ALLOPURINOL [Concomitant]
     Indication: PROPHYLAXIS
     Dosage: UNK UKN, UNK
     Dates: start: 20120423, end: 20120518

REACTIONS (16)
  - PLATELET COUNT INCREASED [None]
  - LYMPHOCYTE COUNT DECREASED [None]
  - EOSINOPHIL COUNT DECREASED [None]
  - GLOMERULAR FILTRATION RATE DECREASED [None]
  - PERIORBITAL OEDEMA [None]
  - WHITE BLOOD CELL COUNT DECREASED [None]
  - PLATELET MORPHOLOGY ABNORMAL [None]
  - NEUTROPHIL MORPHOLOGY ABNORMAL [None]
  - RASH PAPULAR [None]
  - MALAISE [None]
  - RASH MACULAR [None]
  - MONOCYTE COUNT DECREASED [None]
  - NEUTROPHIL COUNT DECREASED [None]
  - ACUTE FEBRILE NEUTROPHILIC DERMATOSIS [None]
  - BASOPHIL COUNT DECREASED [None]
  - METAMYELOCYTE COUNT DECREASED [None]
